FAERS Safety Report 8789325 (Version 1)
Quarter: 2012Q4

REPORT INFORMATION
  Report Type: Spontaneous
  Country: US (occurrence: None)
  Receive Date: 20120904
  Receipt Date: 20120904
  Transmission Date: 20130627
  Serious: Yes (Other)
  Sender: FDA-Public Use
  Company Number: ACO_31572_2012

PATIENT
  Age: 50 Year
  Sex: Female
  Weight: 69.5 kg

DRUGS (11)
  1. DALFAMPRIDINE [Suspect]
     Indication: SENSORIMOTOR DISORDER
     Route: 048
     Dates: start: 20120725, end: 20120819
  2. ROSUVASTATIN (ROSUVASTATIN) [Concomitant]
  3. OMEPRAZOLE (OMEPRAZOLE) [Concomitant]
  4. CITALOPRAM (CITALOPRAM HYDROCHLORIDE) [Concomitant]
  5. TRAMADOL (TRAMADOL HYDROCHLORIDE) [Concomitant]
  6. LOSARTAN (LOSARTAN POTASSIUM) [Concomitant]
  7. ASPIRIN (ACETYLSALICYLIC ACID) [Concomitant]
  8. SENNOSIDES A+B (SENNOSIDE A+B) [Concomitant]
  9. LIORESAL (BACLOFEN) [Concomitant]
  10. ACETAMINOPHEN (PARACETAMOL) [Concomitant]
  11. NAPROXEN (NAPROXEN) [Concomitant]

REACTIONS (12)
  - Convulsion [None]
  - Sinus headache [None]
  - Dysmenorrhoea [None]
  - Menopause [None]
  - Haemorrhage [None]
  - Fall [None]
  - Postictal state [None]
  - Confusional state [None]
  - Headache [None]
  - Somnolence [None]
  - Agitation [None]
  - Drug screen positive [None]
